FAERS Safety Report 7806317-2 (Version None)
Quarter: 2011Q4

REPORT INFORMATION
  Report Type: 
  Country: None (occurrence: None)
  Receive Date: 20111011
  Receipt Date: 20111006
  Transmission Date: 20120403
  Serious: Yes (Death)
  Sender: FDA-Public Use
  Company Number: US-CELGENEUS-163-21880-11100862

PATIENT
  Sex: Female

DRUGS (15)
  1. REVLIMID [Suspect]
     Dosage: 10 MILLIGRAM
     Route: 048
     Dates: start: 20110701, end: 20110101
  2. FENTANYL [Concomitant]
     Dosage: 100 MICROGRAM
     Route: 065
  3. REVLIMID [Suspect]
     Dosage: 10MG-5MG
     Route: 048
     Dates: start: 20100601
  4. ASPIRIN [Concomitant]
     Dosage: 325 MILLIGRAM
     Route: 048
  5. AREDIA [Concomitant]
     Dosage: 30 MILLIGRAM
     Route: 065
  6. VITAMIN D [Concomitant]
     Dosage: 1000 UNIT
     Route: 048
  7. ACYCLOVIR [Concomitant]
     Dosage: 400 MILLIGRAM
     Route: 048
  8. MAGNESIUM [Concomitant]
     Dosage: 500 MILLIGRAM
     Route: 048
  9. QUININE SULFATE [Concomitant]
     Dosage: 325 MILLIGRAM
     Route: 048
  10. PREDNISONE [Concomitant]
     Dosage: 10 MILLIGRAM
     Route: 048
  11. PREVACID [Concomitant]
     Dosage: 15 MILLIGRAM
     Route: 048
  12. ZOVIRAX [Concomitant]
     Dosage: 200 MILLIGRAM
     Route: 048
  13. GABAPENTIN [Concomitant]
     Dosage: 300 MILLIGRAM
     Route: 048
  14. REVLIMID [Suspect]
     Indication: MULTIPLE MYELOMA
     Dosage: 5 MILLIGRAM
     Route: 048
     Dates: start: 20080801
  15. BACTRIM DS [Concomitant]
     Dosage: 800-160
     Route: 048

REACTIONS (1)
  - DEATH [None]
